FAERS Safety Report 8547675-3 (Version None)
Quarter: 2012Q3

REPORT INFORMATION
  Report Type: 
  Country: None (occurrence: None)
  Receive Date: 20120727
  Receipt Date: 20111213
  Transmission Date: 20120928
  Serious: Yes (Hospitalization)
  Sender: FDA-Public Use
  Company Number: US-ASTRAZENECA-2011SE70045

PATIENT
  Age: 80 Year
  Sex: Female

DRUGS (3)
  1. SEROQUEL [Suspect]
     Indication: DEPRESSION
     Route: 048
  2. OTHER MEDICATION [Suspect]
     Route: 065
  3. SIMVASTATIN [Concomitant]

REACTIONS (2)
  - PNEUMONIA [None]
  - OVERDOSE [None]
